FAERS Safety Report 5771855-3 (Version None)
Quarter: 2008Q2

REPORT INFORMATION
  Report Type: 
  Country: None (occurrence: None)
  Receive Date: 20080613
  Receipt Date: 20080606
  Transmission Date: 20081010
  Serious: Yes (Hospitalization)
  Sender: FDA-Public Use
  Company Number: B0509132A

PATIENT
  Age: 34 Year
  Sex: Male

DRUGS (1)
  1. AMOXICILLIN + CLAVULANATE POTASSIUM [Suspect]
     Indication: TONSILLITIS
     Dosage: 1G PER DAY
     Route: 048
     Dates: start: 20080130, end: 20080130

REACTIONS (2)
  - PYREXIA [None]
  - URTICARIA [None]
